FAERS Safety Report 24751844 (Version 2)
Quarter: 2025Q3

REPORT INFORMATION
  Report Type: Report from Study
  Country: US (occurrence: US)
  Receive Date: 20241219
  Receipt Date: 20250803
  Transmission Date: 20251021
  Serious: Yes (Hospitalization, Other)
  Sender: ALEXION PHARMACEUTICALS
  Company Number: US-AstraZeneca-CH-00765495A

PATIENT
  Sex: Female

DRUGS (1)
  1. OSIMERTINIB [Suspect]
     Active Substance: OSIMERTINIB

REACTIONS (14)
  - Product prescribing issue [Unknown]
  - Drug intolerance [Unknown]
  - Oedema peripheral [Unknown]
  - Brain cancer metastatic [Unknown]
  - Rash [Unknown]
  - Dizziness [Unknown]
  - Brain oedema [Unknown]
  - Headache [Unknown]
  - Feeling cold [Unknown]
  - Fatigue [Unknown]
  - Feeling abnormal [Unknown]
  - Memory impairment [Unknown]
  - Gait disturbance [Unknown]
  - Fall [Unknown]
